FAERS Safety Report 24699638 (Version 1)
Quarter: 2024Q4

REPORT INFORMATION
  Report Type: Spontaneous
  Country: JP (occurrence: JP)
  Receive Date: 20241205
  Receipt Date: 20241205
  Transmission Date: 20250114
  Serious: Yes (Death, Other)
  Sender: GENMAB
  Company Number: JP-GENMAB-2024-04157

PATIENT
  Age: 9 Decade

DRUGS (2)
  1. EPKINLY [Suspect]
     Active Substance: EPCORITAMAB-BYSP
     Indication: Diffuse large B-cell lymphoma
     Dosage: 0.8 MILLIGRAM, SINGLE
     Route: 058
     Dates: start: 20241029, end: 20241029
  2. EPKINLY [Suspect]
     Active Substance: EPCORITAMAB-BYSP
     Dosage: 48 MILLIGRAM
     Route: 058
     Dates: start: 202411, end: 202411

REACTIONS (2)
  - Diffuse large B-cell lymphoma [Fatal]
  - Tumour associated fever [Unknown]

NARRATIVE: CASE EVENT DATE: 20240101
